FAERS Safety Report 18180615 (Version 1)
Quarter: 2020Q3

REPORT INFORMATION
  Report Type: Spontaneous
  Country: IT (occurrence: IT)
  Receive Date: 20200821
  Receipt Date: 20200821
  Transmission Date: 20201103
  Serious: Yes (Hospitalization, Other)
  Sender: FDA-Public Use
  Company Number: IT-SUNOVION-2020SUN002416

PATIENT

DRUGS (3)
  1. SEROQUEL [Suspect]
     Active Substance: QUETIAPINE FUMARATE
     Indication: DRUG ABUSE
     Route: 048
     Dates: start: 20200630, end: 20200630
  2. LATUDA [Suspect]
     Active Substance: LURASIDONE HYDROCHLORIDE
     Indication: DRUG ABUSE
     Dosage: UNK
     Route: 048
     Dates: start: 20200630, end: 20200630
  3. LEXOTAN [Suspect]
     Active Substance: BROMAZEPAM
     Indication: DRUG ABUSE
     Route: 048
     Dates: start: 20200630, end: 20200630

REACTIONS (5)
  - Sopor [Recovering/Resolving]
  - Loss of consciousness [Recovering/Resolving]
  - Drug abuse [Unknown]
  - Overdose [Unknown]
  - Intentional self-injury [Recovering/Resolving]

NARRATIVE: CASE EVENT DATE: 20200630
